FAERS Safety Report 21142667 (Version 1)
Quarter: 2022Q3

REPORT INFORMATION
  Report Type: Spontaneous
  Country: DK (occurrence: DK)
  Receive Date: 20220728
  Receipt Date: 20220728
  Transmission Date: 20221027
  Serious: Yes (Hospitalization)
  Sender: FDA-Public Use
  Company Number: None

PATIENT
  Age: 54 Year
  Sex: Male

DRUGS (10)
  1. CYTARABINE [Suspect]
     Active Substance: CYTARABINE
     Indication: Histiocytic sarcoma
     Dosage: UNK
     Route: 042
     Dates: start: 20190708, end: 20190713
  2. CYTARABINE [Suspect]
     Active Substance: CYTARABINE
     Dosage: UNK
     Route: 050
     Dates: start: 20190708, end: 20190713
  3. CYTARABINE [Suspect]
     Active Substance: CYTARABINE
     Indication: Histiocytic sarcoma
     Dosage: DOSE REDUCED FROM LAST TREATMENT
     Route: 050
     Dates: start: 20190826, end: 20190831
  4. CYTARABINE [Suspect]
     Active Substance: CYTARABINE
     Dosage: DOSE REDUCED FROM LAST TREATMENT
     Route: 042
     Dates: start: 20190826, end: 20190831
  5. MITOXANTRONE [Suspect]
     Active Substance: MITOXANTRONE HYDROCHLORIDE
     Indication: Histiocytic sarcoma
     Dosage: UNK
     Route: 050
     Dates: start: 20190708, end: 20190713
  6. MITOXANTRONE [Suspect]
     Active Substance: MITOXANTRONE HYDROCHLORIDE
     Dosage: UNK
     Route: 042
     Dates: start: 20190708, end: 20190713
  7. MITOXANTRONE [Suspect]
     Active Substance: MITOXANTRONE HYDROCHLORIDE
     Dosage: DOSE REDUCED FROM LAST TREATMENT
     Route: 050
     Dates: start: 20190826, end: 20190831
  8. MITOXANTRONE [Suspect]
     Active Substance: MITOXANTRONE HYDROCHLORIDE
     Dosage: DOSE REDUCED FROM LAST TREATMENT
     Route: 042
     Dates: start: 20190826, end: 20190831
  9. CLADRIBINE [Suspect]
     Active Substance: CLADRIBINE
     Indication: Histiocytic sarcoma
     Dosage: UNK
     Route: 042
     Dates: start: 20190708, end: 20190713
  10. CLADRIBINE [Suspect]
     Active Substance: CLADRIBINE
     Dosage: DOSE REDUCED FROM LAST TREATMENT
     Route: 042
     Dates: start: 20190826, end: 20190831

REACTIONS (10)
  - Headache [Unknown]
  - Memory impairment [Unknown]
  - Coordination abnormal [Unknown]
  - Visual impairment [Unknown]
  - Abnormal behaviour [Unknown]
  - Febrile neutropenia [Recovered/Resolved]
  - General physical health deterioration [Unknown]
  - Leukopenia [Recovered/Resolved]
  - Infection [Unknown]
  - Off label use [Unknown]

NARRATIVE: CASE EVENT DATE: 20190101
